FAERS Safety Report 7282439-2 (Version None)
Quarter: 2011Q1

REPORT INFORMATION
  Report Type: 
  Country: None (occurrence: None)
  Receive Date: 20110209
  Receipt Date: 20110203
  Transmission Date: 20110831
  Serious: Yes (Death)
  Sender: FDA-Public Use
  Company Number: LT-BRISTOL-MYERS SQUIBB COMPANY-15527989

PATIENT
  Age: 42 Year
  Sex: Male

DRUGS (2)
  1. MEGACE [Suspect]
     Indication: DECREASED APPETITE
     Route: 048
  2. MEGACE [Suspect]
     Indication: CACHEXIA
     Route: 048

REACTIONS (1)
  - ASCITES [None]
